FAERS Safety Report 15719442 (Version 1)
Quarter: 2018Q4

REPORT INFORMATION
  Report Type: Spontaneous
  Country: US (occurrence: US)
  Receive Date: 20181213
  Receipt Date: 20181213
  Transmission Date: 20190205
  Serious: Yes (Other)
  Sender: FDA-Public Use
  Company Number: PHHY2018US178411

PATIENT
  Age: 31 Year
  Sex: Female

DRUGS (5)
  1. TACROLIMUS. [Suspect]
     Active Substance: TACROLIMUS
     Indication: LUNG TRANSPLANT
     Dosage: 2.5 MG, Q12H
     Route: 065
  2. MYCOPHENOLATE [Concomitant]
     Active Substance: MYCOPHENOLIC ACID
     Indication: LUNG TRANSPLANT
     Dosage: 750 MG, Q12H
     Route: 065
  3. MYCOPHENOLATE [Concomitant]
     Active Substance: MYCOPHENOLIC ACID
     Indication: IMMUNOSUPPRESSANT DRUG THERAPY
  4. TACROLIMUS. [Suspect]
     Active Substance: TACROLIMUS
     Indication: IMMUNOSUPPRESSANT DRUG THERAPY
  5. METOPROLOL. [Concomitant]
     Active Substance: METOPROLOL
     Indication: BLOOD PRESSURE MANAGEMENT
     Dosage: 12.5 MG, Q12H
     Route: 065

REACTIONS (9)
  - Posterior reversible encephalopathy syndrome [Recovering/Resolving]
  - Balint^s syndrome [Recovering/Resolving]
  - Motor dysfunction [Recovering/Resolving]
  - Headache [Unknown]
  - Ataxia [Recovering/Resolving]
  - Apraxia [Recovering/Resolving]
  - Visual agnosia [Recovering/Resolving]
  - Vision blurred [Not Recovered/Not Resolved]
  - Dysmetria [Recovering/Resolving]
